FAERS Safety Report 24568945 (Version 2)
Quarter: 2024Q4

REPORT INFORMATION
  Report Type: Spontaneous
  Country: FR (occurrence: FR)
  Receive Date: 20241031
  Receipt Date: 20241121
  Transmission Date: 20250115
  Serious: Yes (Other)
  Sender: TEVA
  Company Number: FR-TEVA-VS-3257195

PATIENT
  Age: 46 Year
  Sex: Male

DRUGS (1)
  1. OFLOXACIN [Suspect]
     Active Substance: OFLOXACIN
     Indication: Dysuria
     Route: 065

REACTIONS (2)
  - Superior mesenteric artery dissection [Recovering/Resolving]
  - Fibromuscular dysplasia [Unknown]
